FAERS Safety Report 10172158 (Version 1)
Quarter: 2014Q2

REPORT INFORMATION
  Report Type: Report from Study
  Country: GB (occurrence: GB)
  Receive Date: 20140515
  Receipt Date: 20140515
  Transmission Date: 20141212
  Serious: Yes (Other)
  Sender: FDA-Public Use
  Company Number: PHHY2014GB057140

PATIENT
  Age: 37 Year
  Sex: Female
  Weight: 80.1 kg

DRUGS (2)
  1. SOMATROPIN [Suspect]
     Indication: GROWTH HORMONE DEFICIENCY
     Dosage: 0.3 MG, QD
     Route: 058
     Dates: start: 20140331, end: 20140424
  2. SOMATROPIN [Suspect]
     Dosage: 0.1 MG, QD
     Route: 058

REACTIONS (3)
  - Somnambulism [Not Recovered/Not Resolved]
  - Sleep disorder [Not Recovered/Not Resolved]
  - Intracranial pressure increased [Not Recovered/Not Resolved]
